FAERS Safety Report 9632396 (Version 38)
Quarter: 2025Q3

REPORT INFORMATION
  Report Type: Report from Study
  Country: CA (occurrence: CA)
  Receive Date: 20131018
  Receipt Date: 20250807
  Transmission Date: 20251021
  Serious: Yes (Hospitalization, Other)
  Sender: ROCHE
  Company Number: CA-ROCHE-1285240

PATIENT
  Sex: Male
  Weight: 93.0 kg

DRUGS (40)
  1. ACTEMRA [Suspect]
     Active Substance: TOCILIZUMAB
     Indication: Still^s disease
     Route: 042
     Dates: start: 20130808, end: 20151104
  2. ACTEMRA [Suspect]
     Active Substance: TOCILIZUMAB
     Indication: Still^s disease
     Route: 042
     Dates: start: 20131107, end: 20140226
  3. ACTEMRA [Suspect]
     Active Substance: TOCILIZUMAB
     Route: 042
     Dates: start: 20140521, end: 20140820
  4. ACTEMRA [Suspect]
     Active Substance: TOCILIZUMAB
     Route: 042
     Dates: start: 20140723
  5. ACTEMRA [Suspect]
     Active Substance: TOCILIZUMAB
     Route: 042
     Dates: start: 20140820
  6. ACTEMRA [Suspect]
     Active Substance: TOCILIZUMAB
     Route: 042
     Dates: start: 20140918
  7. ACTEMRA [Suspect]
     Active Substance: TOCILIZUMAB
     Route: 042
     Dates: start: 20140326, end: 20140507
  8. ACTEMRA [Suspect]
     Active Substance: TOCILIZUMAB
     Route: 042
     Dates: start: 20141211, end: 20151104
  9. ACTEMRA [Suspect]
     Active Substance: TOCILIZUMAB
     Route: 042
     Dates: start: 20210909
  10. ACTEMRA [Suspect]
     Active Substance: TOCILIZUMAB
     Route: 042
  11. ACTEMRA [Suspect]
     Active Substance: TOCILIZUMAB
     Route: 042
  12. ACTEMRA [Suspect]
     Active Substance: TOCILIZUMAB
     Route: 042
  13. ACTEMRA [Suspect]
     Active Substance: TOCILIZUMAB
     Route: 042
  14. ACTEMRA [Suspect]
     Active Substance: TOCILIZUMAB
     Route: 042
  15. ACTEMRA [Suspect]
     Active Substance: TOCILIZUMAB
     Route: 042
  16. ACTEMRA [Suspect]
     Active Substance: TOCILIZUMAB
     Route: 042
  17. ACTEMRA [Suspect]
     Active Substance: TOCILIZUMAB
     Route: 042
  18. ACTEMRA [Suspect]
     Active Substance: TOCILIZUMAB
     Route: 042
  19. ACTEMRA [Suspect]
     Active Substance: TOCILIZUMAB
     Route: 042
  20. ACTEMRA [Suspect]
     Active Substance: TOCILIZUMAB
     Route: 042
  21. ACTEMRA [Suspect]
     Active Substance: TOCILIZUMAB
     Route: 042
  22. ACTEMRA [Suspect]
     Active Substance: TOCILIZUMAB
     Route: 042
  23. NAPROSYN [Suspect]
     Active Substance: NAPROXEN
     Indication: Inflammation
     Route: 065
  24. ACTEMRA [Suspect]
     Active Substance: TOCILIZUMAB
     Indication: Still^s disease
     Route: 058
     Dates: start: 201511
  25. ACTEMRA [Suspect]
     Active Substance: TOCILIZUMAB
     Indication: Still^s disease
     Route: 058
     Dates: start: 20151218, end: 2019
  26. ACTEMRA [Suspect]
     Active Substance: TOCILIZUMAB
     Route: 058
     Dates: start: 2022, end: 2022
  27. MORPHINE [Concomitant]
     Active Substance: MORPHINE
  28. CESAMET [Concomitant]
     Active Substance: NABILONE
  29. TYLENOL [Concomitant]
     Active Substance: ACETAMINOPHEN
  30. PANTOPRAZOLE SODIUM [Concomitant]
     Active Substance: PANTOPRAZOLE SODIUM
  31. KINERET [Concomitant]
     Active Substance: ANAKINRA
  32. PLAQUENIL [Concomitant]
     Active Substance: HYDROXYCHLOROQUINE SULFATE
  33. COLCHICINE [Concomitant]
     Active Substance: COLCHICINE
  34. METHOTREXATE [Concomitant]
     Active Substance: METHOTREXATE
  35. PREDNISONE [Concomitant]
     Active Substance: PREDNISONE
  36. CORTISONE [Concomitant]
     Active Substance: CORTISONE
     Route: 048
  37. CORTISONE [Concomitant]
     Active Substance: CORTISONE
     Route: 042
  38. CORTISONE [Concomitant]
     Active Substance: CORTISONE
     Route: 048
  39. ELAVIL [Concomitant]
     Active Substance: AMITRIPTYLINE HYDROCHLORIDE
  40. CALCIUM [Concomitant]
     Active Substance: CALCIUM

REACTIONS (43)
  - Weight fluctuation [Unknown]
  - Nephrolithiasis [Not Recovered/Not Resolved]
  - Malaise [Unknown]
  - Pyrexia [Unknown]
  - Chills [Unknown]
  - Feeling hot [Unknown]
  - Penis injury [Not Recovered/Not Resolved]
  - Off label use [Unknown]
  - Fatigue [Unknown]
  - Pain in extremity [Unknown]
  - Musculoskeletal chest pain [Unknown]
  - Skin papilloma [Unknown]
  - Tendon pain [Unknown]
  - Gastrooesophageal reflux disease [Unknown]
  - Back pain [Unknown]
  - Heart rate decreased [Unknown]
  - Body temperature decreased [Unknown]
  - Myalgia [Recovering/Resolving]
  - Depression [Not Recovered/Not Resolved]
  - Nausea [Unknown]
  - Vomiting [Unknown]
  - Hypotension [Unknown]
  - Rash [Not Recovered/Not Resolved]
  - Infectious mononucleosis [Unknown]
  - Fall [Unknown]
  - Rib fracture [Unknown]
  - Pain [Recovering/Resolving]
  - Arthritis [Recovering/Resolving]
  - Rash [Recovering/Resolving]
  - Respiratory rate increased [Unknown]
  - Heart rate increased [Unknown]
  - Pain [Not Recovered/Not Resolved]
  - Weight increased [Not Recovered/Not Resolved]
  - Inflammation [Unknown]
  - Iron deficiency anaemia [Unknown]
  - Rash [Unknown]
  - Hepatitis C [Unknown]
  - Serositis [Unknown]
  - Pericarditis [Unknown]
  - Loss of consciousness [Unknown]
  - Headache [Unknown]
  - Pruritus [Unknown]
  - Seizure [Unknown]

NARRATIVE: CASE EVENT DATE: 20210917
